FAERS Safety Report 18928571 (Version 2)
Quarter: 2021Q1

REPORT INFORMATION
  Report Type: Report from Study
  Country: IT (occurrence: IT)
  Receive Date: 20210223
  Receipt Date: 20210310
  Transmission Date: 20210420
  Serious: Yes (Death, Hospitalization, Other)
  Sender: FDA-Public Use
  Company Number: IT-INCYTE CORPORATION-2019IN001330

PATIENT

DRUGS (11)
  1. JAKAVI [Suspect]
     Active Substance: RUXOLITINIB
     Dosage: 10 MG, TOTAL DAILY DOSE
     Route: 048
     Dates: start: 20190704, end: 20190925
  2. JAKAVI [Suspect]
     Active Substance: RUXOLITINIB
     Dosage: 10 MG, TOTAL DAILY DOSE
     Route: 048
     Dates: start: 20190606, end: 20190702
  3. JAKAVI [Suspect]
     Active Substance: RUXOLITINIB
     Dosage: 20 MG, TOTAL DAILY DOSE
     Route: 048
     Dates: start: 20180222, end: 20180314
  4. JAKAVI [Suspect]
     Active Substance: RUXOLITINIB
     Dosage: 10 MG, TOTAL DAILY DOSE
     Route: 048
     Dates: start: 20180315, end: 20180411
  5. JAKAVI [Suspect]
     Active Substance: RUXOLITINIB
     Dosage: 30 MG, TOTAL DAILY DOSE
     Route: 048
     Dates: start: 20180510, end: 20190605
  6. JAKAVI [Suspect]
     Active Substance: RUXOLITINIB
     Dosage: 20 MG, TOTAL DAILY DOSE
     Route: 048
     Dates: start: 20180412, end: 20180509
  7. HIDROXYUREA [Concomitant]
     Indication: LEUKOCYTOSIS
     Dosage: 500 MG, BID
     Route: 065
     Dates: start: 20210112
  8. JAKAVI [Suspect]
     Active Substance: RUXOLITINIB
     Indication: MYELOFIBROSIS
     Dosage: 15 MG, TOTAL DAILY DOSE
     Route: 048
     Dates: start: 20180130, end: 20180221
  9. JAKAVI [Suspect]
     Active Substance: RUXOLITINIB
     Dosage: 30 MG, TOTAL DAILY DOSE
     Route: 048
     Dates: start: 20180712
  10. JAKAVI [Suspect]
     Active Substance: RUXOLITINIB
     Dosage: 30 MG, TOTAL DAILY DOSE
     Route: 048
     Dates: start: 20190703
  11. JAKAVI [Suspect]
     Active Substance: RUXOLITINIB
     Dosage: 5 MG, BID
     Route: 048
     Dates: end: 20210114

REACTIONS (24)
  - Acute kidney injury [Recovered/Resolved]
  - Cardiac arrest [Fatal]
  - Escherichia infection [Recovered/Resolved]
  - Pelvic deformity [Not Recovered/Not Resolved]
  - Respiratory acidosis [Recovered/Resolved]
  - Septic shock [Recovered/Resolved]
  - Thrombocytopenia [Recovering/Resolving]
  - Anaemia [Recovering/Resolving]
  - Cyanosis [Recovering/Resolving]
  - Dyspnoea [Recovered/Resolved]
  - Hypotension [Recovered/Resolved]
  - Renal disorder [Recovered/Resolved]
  - Splenomegaly [Not Recovered/Not Resolved]
  - Hypouricaemia [Recovered/Resolved]
  - Abdominal pain [Recovering/Resolving]
  - Lymphocyte count decreased [Unknown]
  - Hepatitis B core antibody positive [Not Recovered/Not Resolved]
  - Adrenal mass [Not Recovered/Not Resolved]
  - Infection [Recovered/Resolved]
  - Blood creatinine abnormal [Recovered/Resolved]
  - Aortic aneurysm [Not Recovered/Not Resolved]
  - Platelet count decreased [Unknown]
  - Faeces discoloured [Recovered/Resolved]
  - Pleural effusion [Recovered/Resolved]

NARRATIVE: CASE EVENT DATE: 20180130
